FAERS Safety Report 13902900 (Version 3)
Quarter: 2017Q4

REPORT INFORMATION
  Report Type: Report from Study
  Country: FR (occurrence: FR)
  Receive Date: 20170824
  Receipt Date: 20171024
  Transmission Date: 20180320
  Serious: Yes (Other)
  Sender: FDA-Public Use
  Company Number: FR-SUN PHARMACEUTICAL INDUSTRIES LTD-2017RR-148058

PATIENT
  Age: 66 Year
  Sex: Female

DRUGS (7)
  1. DOXORUBICIN [Suspect]
     Active Substance: DOXORUBICIN
     Indication: PANCREATIC NEUROENDOCRINE TUMOUR
     Dosage: CYCLICAL
     Route: 065
  2. 5-FU [Suspect]
     Active Substance: FLUOROURACIL
     Indication: PANCREATIC NEUROENDOCRINE TUMOUR
     Dosage: CYCLICAL
     Route: 065
  3. PRRT (PEPTIDE RECEPTOR RADIONUCLIDE THERAPY) [Suspect]
     Active Substance: INVESTIGATIONAL PRODUCT
     Indication: PANCREATIC NEUROENDOCRINE TUMOUR
     Route: 065
  4. OXALIPLATIN. [Suspect]
     Active Substance: OXALIPLATIN
     Indication: PANCREATIC NEUROENDOCRINE TUMOUR
     Dosage: CYCLICAL
     Route: 065
  5. EVEROLIMUS. [Suspect]
     Active Substance: EVEROLIMUS
     Indication: PANCREATIC NEUROENDOCRINE TUMOUR
     Dosage: CYCLICAL
     Route: 065
  6. STREPTOZOTOCIN [Suspect]
     Active Substance: STREPTOZOCIN
     Indication: PANCREATIC NEUROENDOCRINE TUMOUR
     Dosage: CYCLICAL
     Route: 065
  7. SSA (SOMATOSTATIN ANALOGUES) [Suspect]
     Active Substance: UNSPECIFIED INGREDIENT
     Indication: PANCREATIC NEUROENDOCRINE TUMOUR
     Route: 065

REACTIONS (3)
  - Nephropathy toxic [Unknown]
  - Chronic kidney disease [Unknown]
  - Toxicity to various agents [Unknown]
